FAERS Safety Report 20176510 (Version 1)
Quarter: 2021Q4

REPORT INFORMATION
  Report Type: Spontaneous
  Country: US (occurrence: None)
  Receive Date: 20211210
  Receipt Date: 20211210
  Transmission Date: 20220303
  Serious: Yes (Hospitalization, Other)
  Sender: FDA-Public Use
  Company Number: None

PATIENT
  Sex: Female
  Weight: 63 kg

DRUGS (1)
  1. ENOXAPARIN SODIUM [Suspect]
     Active Substance: ENOXAPARIN SODIUM
     Indication: Pregnancy
     Dosage: OTHER QUANTITY : 1 INJECTION(S);?FREQUENCY : TWICE A DAY;?
     Route: 058
     Dates: start: 20211030, end: 20211114

REACTIONS (4)
  - Gastroenteritis listeria [None]
  - Maternal exposure during pregnancy [None]
  - Abortion spontaneous [None]
  - Recalled product [None]
